FAERS Safety Report 11849614 (Version 1)
Quarter: 2015Q4

REPORT INFORMATION
  Report Type: Report from Study
  Country: US (occurrence: US)
  Receive Date: 20151218
  Receipt Date: 20151218
  Transmission Date: 20160305
  Serious: No
  Sender: FDA-Public Use
  Company Number: US-CELGENEUS-USA-2015114796

PATIENT

DRUGS (2)
  1. CORTISONE [Concomitant]
     Active Substance: CORTISONE\HYDROCORTISONE
     Indication: PRODUCT USED FOR UNKNOWN INDICATION
     Route: 050
  2. THALOMID [Suspect]
     Active Substance: THALIDOMIDE
     Indication: NEUROPATHY PERIPHERAL
     Route: 048

REACTIONS (2)
  - Injection related reaction [Unknown]
  - Unevaluable event [Unknown]
